FAERS Safety Report 21399673 (Version 1)
Quarter: 2022Q4

REPORT INFORMATION
  Report Type: Report from Study
  Country: US (occurrence: US)
  Receive Date: 20221001
  Receipt Date: 20221001
  Transmission Date: 20230113
  Serious: Yes (Other)
  Sender: FDA-Public Use
  Company Number: US-ABBVIE-4134414

PATIENT
  Sex: Male

DRUGS (3)
  1. HUMIRA [Suspect]
     Active Substance: ADALIMUMAB
     Indication: Product used for unknown indication
     Dosage: CITRATE FREE
     Route: 058
  2. Pfizer/BioNTech Covid vaccine [Concomitant]
     Indication: COVID-19 immunisation
     Dosage: 1ST DOSE ?1 IN ONCE
     Route: 030
     Dates: start: 20210621, end: 20210621
  3. Pfizer/BioNTech Covid vaccine [Concomitant]
     Indication: COVID-19 immunisation
     Dosage: 2ND DOSE?1 IN ONCE
     Route: 030
     Dates: start: 20210719, end: 20210719

REACTIONS (1)
  - Scoliosis [Unknown]
